FAERS Safety Report 7177352-5 (Version None)
Quarter: 2010Q4

REPORT INFORMATION
  Report Type: 
  Country: None (occurrence: None)
  Receive Date: 20101220
  Receipt Date: 20101206
  Transmission Date: 20110411
  Serious: Yes (Hospitalization, Disabling)
  Sender: FDA-Public Use
  Company Number: PHHY2010CL77541

PATIENT
  Age: 83 Year
  Sex: Male

DRUGS (2)
  1. TAREG D [Suspect]
     Indication: HYPERTENSION
     Route: 048
  2. ALLOPURINOL [Concomitant]

REACTIONS (5)
  - HAEMATOMA [None]
  - PROSTATIC DISORDER [None]
  - ROAD TRAFFIC ACCIDENT [None]
  - URINARY RETENTION [None]
  - WOUND [None]
